FAERS Safety Report 20616237 (Version 2)
Quarter: 2022Q2

REPORT INFORMATION
  Report Type: Spontaneous
  Country: US (occurrence: None)
  Receive Date: 20220321
  Receipt Date: 20220505
  Transmission Date: 20220721
  Serious: No
  Sender: FDA-Public Use
  Company Number: 2022A110778

PATIENT

DRUGS (1)
  1. EVUSHELD [Suspect]
     Active Substance: CILGAVIMAB\TIXAGEVIMAB
     Indication: Leukaemia
     Dosage: ONE INJECTION IN EACH SHOULDER, DOSE UNKNOWN ONCE/SINGLE ADMINISTRATION
     Route: 030
     Dates: start: 2022

REACTIONS (2)
  - Alopecia [Not Recovered/Not Resolved]
  - Product administered at inappropriate site [Unknown]

NARRATIVE: CASE EVENT DATE: 20220101
